FAERS Safety Report 6120422-0 (Version None)
Quarter: 2009Q1

REPORT INFORMATION
  Report Type: 
  Country: None (occurrence: None)
  Receive Date: 20090317
  Receipt Date: 20090311
  Transmission Date: 20090719
  Serious: Yes (Death, Other)
  Sender: FDA-Public Use
  Company Number: PHHY2009IE08815

PATIENT
  Age: 61 Year
  Sex: Male

DRUGS (3)
  1. GLEEVEC [Suspect]
     Indication: ACUTE LYMPHOCYTIC LEUKAEMIA
     Dosage: 400 MG, BID
  2. GLEEVEC [Suspect]
     Dosage: 200 MG, BID
  3. ANTINEOPLASTIC AGENTS [Concomitant]

REACTIONS (5)
  - GASTRIC HAEMORRHAGE [None]
  - HEPATIC FUNCTION ABNORMAL [None]
  - INFECTION [None]
  - NEUTROPENIA [None]
  - PYREXIA [None]
